FAERS Safety Report 18401886 (Version 1)
Quarter: 2020Q4

REPORT INFORMATION
  Report Type: Spontaneous
  Country: FR (occurrence: FR)
  Receive Date: 20201020
  Receipt Date: 20201020
  Transmission Date: 20210114
  Serious: Yes (Hospitalization)
  Sender: FDA-Public Use
  Company Number: FR-BIOVITRUM-2020FR5453

PATIENT
  Sex: Male

DRUGS (2)
  1. COLCHICINE. [Concomitant]
     Active Substance: COLCHICINE
  2. KINERET [Suspect]
     Active Substance: ANAKINRA
     Indication: GOUT
     Dosage: FOR 3 DAYS
     Route: 058

REACTIONS (2)
  - Gout [Unknown]
  - Off label use [Unknown]
